FAERS Safety Report 8033367-6 (Version None)
Quarter: 2012Q1

REPORT INFORMATION
  Report Type: 
  Country: None (occurrence: None)
  Receive Date: 20120110
  Receipt Date: 20120105
  Transmission Date: 20120608
  Serious: Yes (Death, Hospitalization, Other)
  Sender: FDA-Public Use
  Company Number: JP-JNJFOC-20100907995

PATIENT
  Sex: Male
  Weight: 50 kg

DRUGS (15)
  1. MARZULENE-S [Concomitant]
     Indication: GASTRITIS
     Route: 048
     Dates: start: 20091222
  2. FENTANYL-100 [Suspect]
     Indication: NEOPLASM MALIGNANT
     Route: 062
     Dates: start: 20100101, end: 20100106
  3. MORPHINE SULFATE [Suspect]
     Indication: PAIN
     Route: 048
     Dates: start: 20091207, end: 20091217
  4. FENTANYL-100 [Suspect]
     Indication: ANALGESIC THERAPY
     Route: 062
     Dates: start: 20100101, end: 20100106
  5. LOXONIN [Concomitant]
     Indication: ANALGESIC THERAPY
     Route: 048
     Dates: start: 20091222
  6. ENSURE [Concomitant]
     Route: 048
     Dates: start: 20091222
  7. OXINORM [Concomitant]
     Indication: ANALGESIC THERAPY
     Route: 048
     Dates: start: 20091224
  8. ACETAMINOPHEN [Concomitant]
     Route: 048
     Dates: start: 20100106, end: 20100108
  9. FLUOROURACIL [Suspect]
     Indication: HEAD AND NECK CANCER
     Route: 041
     Dates: start: 20091211
  10. NOVAMIN [Concomitant]
     Indication: NAUSEA
     Route: 048
     Dates: start: 20091224
  11. LOPERAMIDE HCL [Suspect]
     Indication: DIARRHOEA
     Route: 048
     Dates: start: 20100104, end: 20100108
  12. MORPHINE SULFATE [Suspect]
     Route: 048
     Dates: start: 20100106, end: 20100107
  13. CISPLATIN [Concomitant]
     Indication: HEAD AND NECK CANCER
     Route: 041
     Dates: start: 20091211
  14. MORPHINE SULFATE [Suspect]
     Route: 048
     Dates: start: 20100107, end: 20100108
  15. ACETAMINOPHEN [Concomitant]
     Indication: ANALGESIC THERAPY
     Route: 048
     Dates: start: 20091230

REACTIONS (6)
  - SHOCK [None]
  - INTESTINAL OBSTRUCTION [None]
  - PORTAL VENOUS GAS [None]
  - DRUG INEFFECTIVE [None]
  - MULTI-ORGAN FAILURE [None]
  - ACIDOSIS [None]
